FAERS Safety Report 19268876 (Version 1)
Quarter: 2021Q2

REPORT INFORMATION
  Report Type: Spontaneous
  Country: US (occurrence: US)
  Receive Date: 20210517
  Receipt Date: 20210517
  Transmission Date: 20210717
  Serious: Yes (Other)
  Sender: FDA-Public Use
  Company Number: US-EMD SERONO-7168332

PATIENT
  Age: 50 Year
  Sex: Female

DRUGS (2)
  1. REBIF [Suspect]
     Active Substance: INTERFERON BETA-1A
     Indication: MULTIPLE SCLEROSIS
     Route: 058
     Dates: start: 20040219, end: 201201
  2. REBIF [Suspect]
     Active Substance: INTERFERON BETA-1A
     Route: 058

REACTIONS (12)
  - Wrist fracture [Unknown]
  - Ligament rupture [Recovering/Resolving]
  - Ligament sprain [Unknown]
  - Fall [Recovering/Resolving]
  - Skin laceration [Unknown]
  - Weight increased [Unknown]
  - Joint noise [Unknown]
  - Memory impairment [Unknown]
  - Meniscus injury [Unknown]
  - Joint injury [Unknown]
  - Osteoarthritis [Unknown]
  - Joint stiffness [Unknown]

NARRATIVE: CASE EVENT DATE: 2009
